FAERS Safety Report 12896816 (Version 2)
Quarter: 2016Q4

REPORT INFORMATION
  Report Type: Spontaneous
  Country: JP (occurrence: JP)
  Receive Date: 20161031
  Receipt Date: 20161214
  Transmission Date: 20170207
  Serious: Yes (Hospitalization, Other)
  Sender: FDA-Public Use
  Company Number: JP-PFIZER INC-2016494939

PATIENT
  Age: 71 Year
  Sex: Female

DRUGS (4)
  1. G-LASTA [Concomitant]
     Active Substance: PEGFILGRASTIM
     Dosage: UNK
  2. FARMORUBICIN [Suspect]
     Active Substance: EPIRUBICIN HYDROCHLORIDE
     Dosage: UNK
     Route: 041
  3. 5-FU [Concomitant]
     Active Substance: FLUOROURACIL
     Dosage: UNK
  4. ENDOXAN [Concomitant]
     Active Substance: CYCLOPHOSPHAMIDE
     Dosage: UNK

REACTIONS (7)
  - Hepatic function abnormal [Recovered/Resolved]
  - Febrile neutropenia [Recovered/Resolved]
  - Pancreatic pseudocyst [Recovered/Resolved]
  - Pseudomembranous colitis [Recovered/Resolved]
  - Dehydration [Recovered/Resolved]
  - Malaise [Recovered/Resolved]
  - Spinal compression fracture [Recovered/Resolved]
